FAERS Safety Report 6924173-1 (Version None)
Quarter: 2010Q3

REPORT INFORMATION
  Report Type: 
  Country: None (occurrence: None)
  Receive Date: 20100812
  Receipt Date: 20100812
  Transmission Date: 20110219
  Serious: No
  Sender: FDA-Public Use
  Company Number: None

PATIENT
  Sex: Female
  Weight: 141.5223 kg

DRUGS (1)
  1. LEVAQUIN [Suspect]
     Indication: PNEUMONIA
     Dosage: 500MG 2 TIME PER DAY PO
     Route: 048
     Dates: start: 20100213, end: 20100227

REACTIONS (16)
  - ANXIETY [None]
  - ARTHRITIS REACTIVE [None]
  - BLEPHAROSPASM [None]
  - BRAIN OEDEMA [None]
  - DYSSTASIA [None]
  - GAIT DISTURBANCE [None]
  - GENERALISED OEDEMA [None]
  - HEAD DISCOMFORT [None]
  - HYPERAESTHESIA [None]
  - INFLAMMATION [None]
  - INSOMNIA [None]
  - NERVOUS SYSTEM DISORDER [None]
  - PAIN [None]
  - PAIN IN EXTREMITY [None]
  - SUICIDAL IDEATION [None]
  - TENDON DISORDER [None]
